FAERS Safety Report 5910174-9 (Version None)
Quarter: 2008Q4

REPORT INFORMATION
  Report Type: 
  Country: None (occurrence: None)
  Receive Date: 20081007
  Receipt Date: 20070925
  Transmission Date: 20090506
  Serious: No
  Sender: FDA-Public Use
  Company Number: US-ASTRAZENECA-2007UW22453

PATIENT
  Age: 81 Year
  Sex: Female
  Weight: 63.1 kg

DRUGS (4)
  1. ARIMIDEX [Suspect]
     Indication: BREAST CANCER
     Route: 048
     Dates: start: 20070701
  2. SIMVASTATIN [Concomitant]
  3. EYE DROP (TIMILOL) [Concomitant]
  4. BETAMETHASONE DIPROPRIANATE (LIDEX). [Concomitant]

REACTIONS (2)
  - ASTHENIA [None]
  - GAIT DISTURBANCE [None]
